FAERS Safety Report 16053998 (Version 1)
Quarter: 2019Q1

REPORT INFORMATION
  Report Type: Spontaneous
  Country: US (occurrence: US)
  Receive Date: 20190308
  Receipt Date: 20190308
  Transmission Date: 20190418
  Serious: Yes (Other)
  Sender: FDA-Public Use
  Company Number: US-ELI_LILLY_AND_COMPANY-US201902013374

PATIENT
  Sex: Male

DRUGS (3)
  1. HUMULIN R [Suspect]
     Active Substance: INSULIN HUMAN
     Dosage: 0.12 MLS, DAILY
     Route: 065
  2. HUMULIN R [Suspect]
     Active Substance: INSULIN HUMAN
     Dosage: 0.14 MLS, DAILY
     Route: 065
  3. HUMULIN R [Suspect]
     Active Substance: INSULIN HUMAN
     Indication: PRODUCT USED FOR UNKNOWN INDICATION
     Dosage: 0.18 MLS, DAILY
     Route: 065

REACTIONS (7)
  - Altered state of consciousness [Unknown]
  - Mobility decreased [Unknown]
  - Seizure [Unknown]
  - Fall [Unknown]
  - Wrong technique in product usage process [Unknown]
  - Speech disorder [Recovering/Resolving]
  - Blood glucose decreased [Unknown]
